FAERS Safety Report 11119358 (Version 2)
Quarter: 2015Q2

REPORT INFORMATION
  Report Type: Spontaneous
  Country: FR (occurrence: FR)
  Receive Date: 20150518
  Receipt Date: 20150603
  Transmission Date: 20150821
  Serious: Yes (Hospitalization, Other)
  Sender: FDA-Public Use
  Company Number: FR-PFIZER INC-2015162793

PATIENT
  Age: 53 Year
  Sex: Male

DRUGS (18)
  1. ZYLORIC [Suspect]
     Active Substance: ALLOPURINOL
     Dosage: 300 MG, 1X/DAY
     Route: 048
     Dates: start: 20150303, end: 20150312
  2. PARACETAMOL [Concomitant]
     Active Substance: ACETAMINOPHEN
     Dosage: 1 G, DAILY ON DAY 1 CYCLIC
     Dates: start: 20150330, end: 20150330
  3. ZYLORIC [Suspect]
     Active Substance: ALLOPURINOL
     Dosage: 100 MG, 1X/DAY
     Route: 048
     Dates: start: 20150313, end: 20150316
  4. ZELITREX [Suspect]
     Active Substance: VALACYCLOVIR HYDROCHLORIDE
     Dosage: 500 MG, 2X/DAY
     Route: 048
     Dates: start: 20150303, end: 20150317
  5. NEULASTA [Suspect]
     Active Substance: PEGFILGRASTIM
     Indication: MANTLE CELL LYMPHOMA
     Dosage: 6 MG A DAY ON DAY 4, CYCLIC
     Route: 058
     Dates: start: 20150306, end: 20150402
  6. SOLU-MEDROL [Suspect]
     Active Substance: METHYLPREDNISOLONE SODIUM SUCCINATE
     Indication: MANTLE CELL LYMPHOMA
     Dosage: 80 MG, ON DAY 1 AND DAY 2,CYCLIC
     Route: 042
     Dates: start: 20150303, end: 20150331
  7. OXALIPLATIN. [Suspect]
     Active Substance: OXALIPLATIN
     Indication: MANTLE CELL LYMPHOMA
     Dosage: 270 MG, ON DAY 1, CYCLIC
     Route: 042
     Dates: start: 20150303, end: 20150330
  8. BACTRIM [Suspect]
     Active Substance: SULFAMETHOXAZOLE\TRIMETHOPRIM
     Dosage: 1 DF, ALTERNATE DAY
     Route: 048
     Dates: start: 20150303, end: 20150313
  9. CEFOTAXIME [Suspect]
     Active Substance: CEFOTAXIME\CEFOTAXIME SODIUM
     Indication: PYREXIA
     Dosage: 2 G, 3X/DAY
     Route: 042
     Dates: start: 20150312, end: 20150314
  10. PARACETAMOL [Concomitant]
     Active Substance: ACETAMINOPHEN
     Dosage: 1 G, ON DAY 1 CYCLIC
     Dates: start: 20150303, end: 20150303
  11. XYZALL [Concomitant]
     Active Substance: LEVOCETIRIZINE DIHYDROCHLORIDE
     Dosage: 5 MG, DAILY ON DAY 1 CYCLIC
     Dates: start: 20150330, end: 20150330
  12. XYZALL [Concomitant]
     Active Substance: LEVOCETIRIZINE DIHYDROCHLORIDE
     Dosage: 5 MG, ON DAY 1 CYCLIC
     Dates: start: 20150303, end: 20150303
  13. ZOPHREN [Concomitant]
     Active Substance: ONDANSETRON
     Dosage: 8 MG, 2X/DAY (CURE 2)
     Dates: start: 20150330, end: 20150331
  14. MABTHERA [Suspect]
     Active Substance: RITUXIMAB
     Indication: MANTLE CELL LYMPHOMA
     Dosage: 780 MG, ON DAY 1,CYCLIC
     Route: 042
     Dates: start: 20150303, end: 20150330
  15. DEXAMETHASONE. [Suspect]
     Active Substance: DEXAMETHASONE
     Indication: MANTLE CELL LYMPHOMA
     Dosage: 40 MG, 1X/DAY, ON DAY 3 AND DAY 4, CYCLIC
     Route: 048
     Dates: start: 20150305, end: 20150402
  16. ZOPHREN [Concomitant]
     Active Substance: ONDANSETRON
     Dosage: 8 MG, 2X/DAY ON DAY 1 AND DAY 2
     Dates: start: 20150303, end: 20150304
  17. ARACYTINE [Suspect]
     Active Substance: CYTARABINE
     Indication: MANTLE CELL LYMPHOMA
     Dosage: 8500 MG (4250 MG X 2/DAY) ON DAY 2, CYCLIC
     Route: 042
     Dates: start: 20150304, end: 20150331
  18. AUGMENTIN [Suspect]
     Active Substance: AMOXICILLIN\CLAVULANATE POTASSIUM
     Indication: PYREXIA
     Dosage: 1 G, DAILY
     Route: 048
     Dates: start: 20150311, end: 20150312

REACTIONS (3)
  - Oedema peripheral [Recovered/Resolved]
  - Rash morbilliform [Recovered/Resolved]
  - Hyperthermia [Recovered/Resolved]

NARRATIVE: CASE EVENT DATE: 20150311
